FAERS Safety Report 6190561-7 (Version None)
Quarter: 2009Q2

REPORT INFORMATION
  Report Type: 
  Country: None (occurrence: None)
  Receive Date: 20090514
  Receipt Date: 20090501
  Transmission Date: 20091009
  Serious: Yes (Hospitalization, Other)
  Sender: FDA-Public Use
  Company Number: US-BRISTOL-MYERS SQUIBB COMPANY-14609358

PATIENT
  Age: 49 Year
  Sex: Female

DRUGS (18)
  1. DASATINIB [Suspect]
     Indication: MYCOSIS FUNGOIDES
     Dosage: 11MAR2009-22APR2009:200MG 23APR2009:150MG
     Route: 048
     Dates: start: 20090311, end: 20090423
  2. VANCOMYCIN HCL [Interacting]
     Route: 042
     Dates: start: 20090422, end: 20090422
  3. ZYVOX [Interacting]
     Dates: start: 20090422, end: 20090423
  4. METHADONE HCL [Interacting]
     Route: 048
     Dates: end: 20090423
  5. COMPAZINE [Concomitant]
  6. ACETAMINOPHEN AND HYDROCODONE BITARTRATE [Concomitant]
     Dosage: 1 DF = 7.5MG /325MG Q4H
     Route: 048
  7. CODEINE + GUAIFENESIN [Concomitant]
     Dosage: SYRUP 1 DF= 5 TO 10ML Q5H
     Route: 048
  8. POTASSIUM CHLORIDE [Concomitant]
     Route: 048
  9. SENOKOT [Concomitant]
     Dosage: TAKEN 2 TABS
     Route: 048
  10. BIOTIN [Concomitant]
     Dosage: 1 DF = 1 CAPS
     Route: 048
  11. LASIX [Concomitant]
     Route: 048
  12. ZYRTEC [Concomitant]
  13. CALCIUM [Concomitant]
     Dosage: TABS
  14. DYAZIDE [Concomitant]
     Dosage: 1 DF = 37.5/25MG CAPS
     Route: 048
  15. LIPITOR [Concomitant]
     Route: 048
  16. LEVOTHYROXINE SODIUM [Concomitant]
     Dosage: TABS
     Route: 048
  17. ZETIA [Concomitant]
     Route: 048
  18. VITAMIN D [Concomitant]
     Dosage: TABS
     Route: 048

REACTIONS (11)
  - ACUTE PULMONARY OEDEMA [None]
  - BACTERIAL INFECTION [None]
  - BLOOD PRESSURE DECREASED [None]
  - DRUG INTERACTION [None]
  - DYSPNOEA [None]
  - PLEURAL EFFUSION [None]
  - PULMONARY CONGESTION [None]
  - RESPIRATORY RATE INCREASED [None]
  - SKIN LESION [None]
  - STAPHYLOCOCCAL INFECTION [None]
  - TACHYCARDIA [None]
